FAERS Safety Report 4457564-1 (Version None)
Quarter: 2004Q3

REPORT INFORMATION
  Report Type: 
  Country: None (occurrence: None)
  Receive Date: 20040922
  Receipt Date: 20040913
  Transmission Date: 20050211
  Serious: Yes (Hospitalization)
  Sender: FDA-Public Use
  Company Number: 2004UW19172

PATIENT
  Age: 72 Year
  Sex: Female

DRUGS (10)
  1. IRESSA [Suspect]
     Indication: PANCREATIC CARCINOMA
     Dosage: 250 MG DAILY PO
     Route: 048
     Dates: start: 20040723, end: 20040910
  2. FLUOROURACIL [Suspect]
     Indication: PANCREATIC CARCINOMA
     Dosage: 340 MG DAILY MON-FRI
     Dates: start: 20040626, end: 20040701
  3. GEMZAR [Suspect]
     Indication: PANCREATIC CARCINOMA
     Dosage: 1750 MG WEEKLY
     Dates: start: 20040722
  4. SYNTHROID [Concomitant]
  5. MAXZIDE [Concomitant]
  6. PROTONIX [Concomitant]
  7. PERCOCET [Concomitant]
  8. CENTRUM [Concomitant]
  9. XANAX [Concomitant]
  10. AMBIEN [Concomitant]

REACTIONS (8)
  - ABDOMINAL PAIN [None]
  - AMMONIA INCREASED [None]
  - HEPATIC FAILURE [None]
  - MENTAL STATUS CHANGES [None]
  - OEDEMA [None]
  - SKIN ULCER [None]
  - TENDERNESS [None]
  - URINARY TRACT INFECTION [None]
